FAERS Safety Report 9915904 (Version 1)
Quarter: 2014Q1

REPORT INFORMATION
  Report Type: Spontaneous
  Country: US (occurrence: None)
  Receive Date: 20140220
  Receipt Date: 20140220
  Transmission Date: 20141002
  Serious: Yes (Other)
  Sender: FDA-Public Use
  Company Number: None

PATIENT
  Age: 74 Year
  Sex: Male
  Weight: 80.73 kg

DRUGS (1)
  1. ZOLEDRONIC ACID [Suspect]
     Dosage: ONCE
     Route: 042

REACTIONS (3)
  - Pain in jaw [None]
  - Computerised tomogram abnormal [None]
  - Tooth extraction [None]
